FAERS Safety Report 13472617 (Version 1)
Quarter: 2017Q2

REPORT INFORMATION
  Report Type: Spontaneous
  Country: US (occurrence: US)
  Receive Date: 20170423
  Receipt Date: 20170423
  Transmission Date: 20170830
  Serious: Yes (Other)
  Sender: FDA-Public Use
  Company Number: None

PATIENT
  Age: 64 Year
  Sex: Female
  Weight: 59.85 kg

DRUGS (6)
  1. VITAMIN C [Concomitant]
     Active Substance: ASCORBIC ACID
  2. CALICUM CITRATE [Concomitant]
  3. LEVOTHYROXINE. [Concomitant]
     Active Substance: LEVOTHYROXINE
  4. VITAMIN D3 [Concomitant]
     Active Substance: CHOLECALCIFEROL
  5. RECLAST [Suspect]
     Active Substance: ZOLEDRONIC ACID
     Indication: BONE LOSS
  6. EPIPEN [Concomitant]
     Active Substance: EPINEPHRINE

REACTIONS (5)
  - Eye swelling [None]
  - Dyspnoea [None]
  - Visual field defect [None]
  - Dysphagia [None]
  - Swelling face [None]

NARRATIVE: CASE EVENT DATE: 20170112
